FAERS Safety Report 7823548-6 (Version None)
Quarter: 2011Q4

REPORT INFORMATION
  Report Type: 
  Country: None (occurrence: None)
  Receive Date: 20111019
  Receipt Date: 20111012
  Transmission Date: 20120403
  Serious: Yes (Hospitalization)
  Sender: FDA-Public Use
  Company Number: JP-TEVA-304865USA

PATIENT
  Age: 57 Year

DRUGS (1)
  1. ZINC ACETATE 25 MG + 50 MG CAPSULES [Suspect]
     Indication: HEPATO-LENTICULAR DEGENERATION
     Route: 048

REACTIONS (1)
  - GASTROINTESTINAL HAEMORRHAGE [None]
